FAERS Safety Report 17711970 (Version 2)
Quarter: 2020Q3

REPORT INFORMATION
  Report Type: Report from Study
  Country: US (occurrence: US)
  Receive Date: 20200427
  Receipt Date: 20200803
  Transmission Date: 20201102
  Serious: No
  Sender: FDA-Public Use
  Company Number: US-JNJFOC-20200422913

PATIENT
  Age: 20 Year
  Sex: Male
  Weight: 57.2 kg

DRUGS (13)
  1. VIIBRYD [Concomitant]
     Active Substance: VILAZODONE HYDROCHLORIDE
     Route: 048
  2. SEROQUEL [Concomitant]
     Active Substance: QUETIAPINE FUMARATE
     Route: 048
     Dates: start: 20190927, end: 20200117
  3. CYPROHEPTADINE. [Concomitant]
     Active Substance: CYPROHEPTADINE
     Route: 048
     Dates: start: 20200131
  4. GABAPENTIN. [Concomitant]
     Active Substance: GABAPENTIN
     Route: 048
  5. DEXILANT [Concomitant]
     Active Substance: DEXLANSOPRAZOLE
     Route: 048
     Dates: start: 20200117
  6. SEROQUEL [Concomitant]
     Active Substance: QUETIAPINE FUMARATE
     Route: 048
     Dates: start: 20190927
  7. SPRAVATO [Suspect]
     Active Substance: ESKETAMINE
     Dates: start: 20200416, end: 20200416
  8. ESCITALOPRAM OXALATE. [Concomitant]
     Active Substance: ESCITALOPRAM OXALATE
     Route: 048
     Dates: start: 20190827
  9. MELATONIN [Concomitant]
     Active Substance: MELATONIN
     Route: 048
     Dates: start: 20190927
  10. TRAZODONE HYDROCHLORIDE. [Concomitant]
     Active Substance: TRAZODONE HYDROCHLORIDE
     Route: 048
     Dates: start: 20190927, end: 20200117
  11. DRONABINOL. [Concomitant]
     Active Substance: DRONABINOL
     Route: 048
     Dates: start: 20200409
  12. SPRAVATO [Suspect]
     Active Substance: ESKETAMINE
     Indication: DEPRESSION
     Dosage: TOTAL 10 DOSES THUS FAR
     Dates: start: 20200318
  13. TRAZODONE HYDROCHLORIDE. [Concomitant]
     Active Substance: TRAZODONE HYDROCHLORIDE
     Route: 048
     Dates: start: 20200117, end: 20200312

REACTIONS (3)
  - Dissociation [Recovered/Resolved]
  - Dizziness [Recovered/Resolved]
  - Sedation [Recovered/Resolved]

NARRATIVE: CASE EVENT DATE: 20200416
